FAERS Safety Report 10965629 (Version 1)
Quarter: 2015Q1

REPORT INFORMATION
  Report Type: Spontaneous
  Country: US (occurrence: None)
  Receive Date: 20150327
  Receipt Date: 20150327
  Transmission Date: 20150721
  Serious: Yes (Death, Life-Threatening, Hospitalization, Disabling)
  Sender: FDA-Public Use
  Company Number: None

PATIENT
  Age: 64 Year
  Sex: Male
  Weight: 68.04 kg

DRUGS (1)
  1. ANBESOL REGULAR STRENGTH GEL [Suspect]
     Active Substance: BENZOCAINE
     Indication: TOOTHACHE
     Dates: start: 20150301, end: 20150317

REACTIONS (1)
  - Methaemoglobinaemia [None]

NARRATIVE: CASE EVENT DATE: 20150317
